FAERS Safety Report 11685503 (Version 1)
Quarter: 2015Q4

REPORT INFORMATION
  Report Type: Spontaneous
  Country: US (occurrence: None)
  Receive Date: 20151029
  Receipt Date: 20151029
  Transmission Date: 20160304
  Serious: No
  Sender: FDA-Public Use
  Company Number: None

PATIENT
  Age: 51 Year
  Sex: Female

DRUGS (1)
  1. ORENCIA [Suspect]
     Active Substance: ABATACEPT
     Dosage: DOSE FORM: INJECTABLE
     Route: 058
     Dates: start: 201508

REACTIONS (1)
  - Nausea [None]

NARRATIVE: CASE EVENT DATE: 20151027
